FAERS Safety Report 25623728 (Version 1)
Quarter: 2025Q3

REPORT INFORMATION
  Report Type: Spontaneous
  Country: US (occurrence: None)
  Receive Date: 20250730
  Receipt Date: 20250730
  Transmission Date: 20251021
  Serious: Yes (Hospitalization)
  Sender: FDA-CTU
  Company Number: None

PATIENT
  Age: 75 Year
  Sex: Male
  Weight: 95.4 kg

DRUGS (4)
  1. YESCARTA [Suspect]
     Active Substance: AXICABTAGENE CILOLEUCEL
     Route: 041
     Dates: start: 20250715, end: 20250715
  2. ANAKINRA [Concomitant]
     Active Substance: ANAKINRA
     Dates: start: 20250720, end: 20250730
  3. METHYLPREDNISOLONE [Concomitant]
     Active Substance: METHYLPREDNISOLONE
     Dates: start: 20250718
  4. TOCILIZUMAB [Concomitant]
     Active Substance: TOCILIZUMAB
     Dates: start: 20250716, end: 20250719

REACTIONS (1)
  - Immune effector cell-associated neurotoxicity syndrome [None]

NARRATIVE: CASE EVENT DATE: 20250720
